FAERS Safety Report 10650871 (Version 1)
Quarter: 2014Q4

REPORT INFORMATION
  Report Type: Spontaneous
  Country: IT (occurrence: IT)
  Receive Date: 20141215
  Receipt Date: 20141215
  Transmission Date: 20150529
  Serious: Yes (Hospitalization)
  Sender: FDA-Public Use
  Company Number: IT-ACCORD-027451

PATIENT
  Age: 60 Year
  Sex: Male

DRUGS (10)
  1. LEVEMIR [Suspect]
     Active Substance: INSULIN DETEMIR
     Indication: DIABETES MELLITUS
     Dosage: 60 LU DAILY (LESS THAN 100)
     Route: 058
     Dates: start: 20100101
  2. CARDIOASPIRIN [Concomitant]
     Active Substance: ASPIRIN
  3. NORVASC [Concomitant]
     Active Substance: AMLODIPINE BESYLATE
  4. SIMVASTATIN. [Concomitant]
     Active Substance: SIMVASTATIN
  5. LANSOPRAZOLE. [Concomitant]
     Active Substance: LANSOPRAZOLE
  6. NOVORAPID [Suspect]
     Active Substance: INSULIN ASPART
     Indication: DIABETES MELLITUS
     Dosage: 86 LU DAILY (LESS THAN 100)
     Route: 058
     Dates: start: 20100101
  7. PIOGLITAZONE/PIOGLITAZONE HYDROCHLORIDE [Suspect]
     Active Substance: PIOGLITAZONE HYDROCHLORIDE
     Indication: DIABETES MELLITUS
     Route: 030
     Dates: start: 20140729, end: 20140811
  8. ENAPREN [Concomitant]
     Active Substance: ENALAPRIL MALEATE
  9. PLETAL [Concomitant]
     Active Substance: CILOSTAZOL
  10. LASIX [Concomitant]
     Active Substance: FUROSEMIDE

REACTIONS (3)
  - Oedema peripheral [Recovering/Resolving]
  - Pleural effusion [Recovering/Resolving]
  - Obstructive airways disorder [Recovering/Resolving]

NARRATIVE: CASE EVENT DATE: 20140811
